FAERS Safety Report 24535559 (Version 1)
Quarter: 2024Q4

REPORT INFORMATION
  Report Type: Spontaneous
  Country: CN (occurrence: CN)
  Receive Date: 20241022
  Receipt Date: 20241022
  Transmission Date: 20250115
  Serious: Yes (Other)
  Sender: NOVARTIS
  Company Number: CN-002147023-NVSC2024CN204070

PATIENT
  Age: 82 Year
  Sex: Female
  Weight: 40 kg

DRUGS (1)
  1. ENTRESTO [Suspect]
     Active Substance: SACUBITRIL\VALSARTAN
     Indication: Cardiac failure
     Dosage: 100 UG, QD
     Route: 048
     Dates: start: 20240623, end: 20240623

REACTIONS (16)
  - Blood pressure decreased [Recovering/Resolving]
  - Arrhythmia [Unknown]
  - Heart rate increased [Unknown]
  - Abdominal distension [Unknown]
  - Abdominal pain [Unknown]
  - Anaemia [Unknown]
  - Heart sounds abnormal [Unknown]
  - Abdominal tenderness [Unknown]
  - Troponin C increased [Unknown]
  - Brain natriuretic peptide increased [Unknown]
  - Blood test abnormal [Unknown]
  - Myocardial necrosis marker increased [Unknown]
  - Blood albumin decreased [Unknown]
  - Globulins increased [Unknown]
  - Blood sodium decreased [Unknown]
  - Blood calcium increased [Unknown]

NARRATIVE: CASE EVENT DATE: 20240623
